FAERS Safety Report 10952800 (Version 1)
Quarter: 2015Q1

REPORT INFORMATION
  Report Type: Spontaneous
  Country: US (occurrence: US)
  Receive Date: 20150325
  Receipt Date: 20150325
  Transmission Date: 20150721
  Serious: No
  Sender: FDA-Public Use
  Company Number: US-009507513-1503USA005985

PATIENT
  Sex: Female

DRUGS (1)
  1. ASMANEX [Suspect]
     Active Substance: MOMETASONE FUROATE
     Dosage: 2 PUFFS/TWICE DAILY/ 1 STANDARD DOSE OF 120
     Route: 055

REACTIONS (4)
  - Drug dose omission [Unknown]
  - Product taste abnormal [Unknown]
  - Product quality issue [Unknown]
  - No adverse event [Unknown]
